FAERS Safety Report 4872923-0 (Version None)
Quarter: 2006Q1

REPORT INFORMATION
  Report Type: 
  Country: None (occurrence: None)
  Receive Date: 20060105
  Receipt Date: 20050131
  Transmission Date: 20060701
  Serious: Yes (Hospitalization)
  Sender: FDA-Public Use
  Company Number: US-BRISTOL-MYERS SQUIBB COMPANY-12843801

PATIENT
  Age: 73 Year
  Sex: Female
  Weight: 102 kg

DRUGS (1)
  1. SERZONE [Suspect]
     Indication: DEPRESSION
     Route: 048
     Dates: start: 20011101, end: 20031101

REACTIONS (1)
  - CHEST PAIN [None]
